FAERS Safety Report 6537369 (Version 1)
Quarter: 2020Q3

REPORT INFORMATION
  Report Type: Report from Study
  Country: JP (occurrence: JP)
  Receive Date: 20080129
  Receipt Date: 20080129
  Transmission Date: 20201104
  Serious: Yes (Hospitalization)
  Sender: FDA-Public Use
  Company Number: JP-JNJFOC-20070902902

PATIENT
  Age: 65 Year
  Sex: Male

DRUGS (17)
  1. FINIBAX [Suspect]
     Active Substance: DORIPENEM MONOHYDRATE
     Route: 041
  2. FINIBAX [Suspect]
     Active Substance: DORIPENEM MONOHYDRATE
     Route: 041
  3. FUNGUARD [Suspect]
     Active Substance: MICAFUNGIN SODIUM
     Indication: CELLULITIS
     Route: 042
  4. BENIDIPINE HYDROCHLORIDE [Concomitant]
     Active Substance: BENIDIPINE HYDROCHLORIDE
     Indication: PRODUCT USED FOR UNKNOWN INDICATION
     Route: 048
  5. ATARAX [Concomitant]
     Active Substance: HYDROXYZINE HYDROCHLORIDE
     Indication: CELLULITIS
     Route: 065
  6. FINIBAX [Suspect]
     Active Substance: DORIPENEM MONOHYDRATE
     Indication: CELLULITIS
     Route: 041
  7. DALACIN?S [Suspect]
     Active Substance: CLINDAMYCIN
     Indication: CELLULITIS
     Route: 041
  8. HUMULIN R [Concomitant]
     Active Substance: INSULIN HUMAN
     Route: 065
  9. INSULIN ASPART [Concomitant]
     Active Substance: INSULIN ASPART
     Indication: PRODUCT USED FOR UNKNOWN INDICATION
     Route: 065
  10. LIVER EXTRACT [Concomitant]
     Active Substance: MAMMAL LIVER
     Indication: HEPATIC FUNCTION ABNORMAL
     Route: 065
  11. NOVOLIN N [Concomitant]
     Active Substance: INSULIN HUMAN
     Indication: PRODUCT USED FOR UNKNOWN INDICATION
     Route: 065
  12. INSULIN ASPART [Concomitant]
     Active Substance: INSULIN ASPART
     Route: 065
  13. NEO?MINOPHAGEN C [Concomitant]
     Indication: HEPATIC FUNCTION ABNORMAL
     Route: 065
  14. ENALAPRIL MALEATE. [Suspect]
     Active Substance: ENALAPRIL MALEATE
     Indication: PRODUCT USED FOR UNKNOWN INDICATION
     Route: 048
  15. PENTAZOCINE LACTATE [Concomitant]
     Active Substance: PENTAZOCINE LACTATE
     Indication: CELLULITIS
     Route: 065
  16. BUPRENORPHINE HYDROCHLORIDE. [Concomitant]
     Active Substance: BUPRENORPHINE HYDROCHLORIDE
     Indication: CELLULITIS
     Route: 065
  17. NOVOLIN N [Concomitant]
     Active Substance: INSULIN HUMAN
     Route: 065

REACTIONS (4)
  - Drug eruption [Recovering/Resolving]
  - Hyperkalaemia [Recovered/Resolved]
  - Hepatic function abnormal [Recovering/Resolving]
  - Renal impairment [Recovering/Resolving]

NARRATIVE: CASE EVENT DATE: 20070615
